FAERS Safety Report 9983544 (Version 4)
Quarter: 2018Q3

REPORT INFORMATION
  Report Type: Report from Study
  Country: None (occurrence: US)
  Receive Date: 20140307
  Receipt Date: 20180704
  Transmission Date: 20181010
  Serious: Yes (Hospitalization, Other)
  Sender: FDA-Public Use
  Company Number: US-ABBVIE-14P-163-1207117-00

PATIENT
  Age: 67 Year
  Sex: Female
  Weight: 56.3 kg

DRUGS (13)
  1. HUMIRA [Suspect]
     Active Substance: ADALIMUMAB
     Route: 058
     Dates: start: 2015
  2. URSODIOL. [Concomitant]
     Active Substance: URSODIOL
     Indication: PRIMARY BILIARY CHOLANGITIS
  3. HYDROCHLOROT [Concomitant]
     Active Substance: HYDROCHLOROTHIAZIDE
     Indication: PRODUCT USED FOR UNKNOWN INDICATION
  4. HUMIRA [Suspect]
     Active Substance: ADALIMUMAB
     Route: 058
     Dates: start: 201609
  5. METOPROLOL. [Concomitant]
     Active Substance: METOPROLOL
     Indication: PRODUCT USED FOR UNKNOWN INDICATION
  6. LEVOTHYROXINE. [Concomitant]
     Active Substance: LEVOTHYROXINE
     Indication: HYPOTHYROIDISM
  7. ZOLPIDEM [Concomitant]
     Active Substance: ZOLPIDEM\ZOLPIDEM TARTRATE
     Indication: SLEEP DISORDER THERAPY
  8. FUROSEMIDE. [Concomitant]
     Active Substance: FUROSEMIDE
     Indication: SWELLING
  9. HUMIRA [Suspect]
     Active Substance: ADALIMUMAB
     Indication: RHEUMATOID ARTHRITIS
     Route: 058
     Dates: start: 20110721, end: 20140224
  10. PANTOPRAZOLE [Concomitant]
     Active Substance: PANTOPRAZOLE
     Indication: GASTROOESOPHAGEAL REFLUX DISEASE
  11. SPIRONOLACTONE. [Concomitant]
     Active Substance: SPIRONOLACTONE
     Indication: SWELLING
  12. HUMIRA [Suspect]
     Active Substance: ADALIMUMAB
     Route: 058
  13. PREDNISONE. [Concomitant]
     Active Substance: PREDNISONE
     Indication: ARTHRALGIA

REACTIONS (26)
  - Anaemia [Unknown]
  - Oesophageal stenosis [Unknown]
  - Adenocarcinoma of colon [Not Recovered/Not Resolved]
  - Radiation proctitis [Unknown]
  - Hepatic enzyme increased [Recovered/Resolved]
  - Haemorrhage [Recovered/Resolved]
  - Large intestine polyp [Recovered/Resolved]
  - Blood potassium decreased [Unknown]
  - Post procedural haemorrhage [Unknown]
  - Rectal haemorrhage [Recovered/Resolved]
  - Radiation proctitis [Recovered/Resolved]
  - Chest pain [Not Recovered/Not Resolved]
  - White blood cell count decreased [Not Recovered/Not Resolved]
  - Proctalgia [Recovered/Resolved]
  - Dysphonia [Unknown]
  - Asthenia [Recovered/Resolved]
  - Blood iron decreased [Recovered/Resolved]
  - Transfusion [Unknown]
  - Varicose vein [Recovered/Resolved]
  - Rectal cancer [Recovering/Resolving]
  - Rectal haemorrhage [Not Recovered/Not Resolved]
  - Radiation associated haemorrhage [Unknown]
  - Herpes zoster [Recovered/Resolved]
  - Primary biliary cholangitis [Not Recovered/Not Resolved]
  - Rectal haemorrhage [Recovered/Resolved]
  - Hepatomegaly [Recovered/Resolved]

NARRATIVE: CASE EVENT DATE: 2012
